FAERS Safety Report 5166371-6 (Version None)
Quarter: 2006Q4

REPORT INFORMATION
  Report Type: 
  Country: None (occurrence: None)
  Receive Date: 20061129
  Receipt Date: 20061116
  Transmission Date: 20070319
  Serious: Yes (Death)
  Sender: FDA-Public Use
  Company Number: S06-USA-04758-01

PATIENT
  Age: 38 Year
  Sex: Female
  Weight: 71.6683 kg

DRUGS (5)
  1. LEXAPRO [Suspect]
     Indication: DEPRESSION
     Dosage: 20 MG QD PO
     Route: 048
     Dates: start: 20040308, end: 20040501
  2. HYDROMORPHONE HCL [Suspect]
     Indication: PAIN
     Dosage: 8 MG PRN PO
     Route: 048
     Dates: end: 20040101
  3. DIPHENHYDRAMINE HCL [Suspect]
     Dates: end: 20040101
  4. ETHANOL [Suspect]
     Dates: end: 20040101
  5. PROMETHAZINE [Concomitant]

REACTIONS (2)
  - DRUG TOXICITY [None]
  - PULMONARY HAEMORRHAGE [None]
